FAERS Safety Report 15634432 (Version 1)
Quarter: 2018Q4

REPORT INFORMATION
  Report Type: Spontaneous
  Country: US (occurrence: US)
  Receive Date: 20181119
  Receipt Date: 20181119
  Transmission Date: 20190205
  Serious: No
  Sender: FDA-Public Use
  Company Number: US-PFIZER INC-2018460779

PATIENT
  Age: 65 Year
  Sex: Male
  Weight: 88.45 kg

DRUGS (1)
  1. ADVIL [Suspect]
     Active Substance: IBUPROFEN
     Indication: ARTHRALGIA
     Dosage: 200 MG, UNK

REACTIONS (2)
  - Intentional product misuse [Unknown]
  - Drug ineffective [Unknown]
